FAERS Safety Report 9303402 (Version 1)
Quarter: 2013Q2

REPORT INFORMATION
  Report Type: Spontaneous
  Country: DE (occurrence: None)
  Receive Date: 20130516
  Receipt Date: 20130516
  Transmission Date: 20140414
  Serious: No
  Sender: FDA-Public Use
  Company Number: 1304DEU017569

PATIENT
  Age: 72 Year
  Sex: Male

DRUGS (1)
  1. KEIMAX [Suspect]
     Indication: COUGH
     Route: 048

REACTIONS (3)
  - Cough [None]
  - Dyspnoea [None]
  - Vomiting [None]
